FAERS Safety Report 5054855-0 (Version None)
Quarter: 2006Q3

REPORT INFORMATION
  Report Type: 
  Country: None (occurrence: None)
  Receive Date: 20060717
  Receipt Date: 20060706
  Transmission Date: 20061208
  Serious: Yes (Other)
  Sender: FDA-Public Use
  Company Number: 2006076019

PATIENT
  Age: 89 Year
  Sex: Female
  Weight: 68.2 kg

DRUGS (24)
  1. NORVASC [Suspect]
     Indication: DRUG USE FOR UNKNOWN INDICATION
  2. DELTASONE [Suspect]
     Indication: DRUG USE FOR UNKNOWN INDICATION
     Dates: end: 20050325
  3. ALDACTONE [Suspect]
     Indication: DRUG USE FOR UNKNOWN INDICATION
  4. BEXTRA [Suspect]
     Indication: DRUG USE FOR UNKNOWN INDICATION
  5. REMERON [Suspect]
     Indication: DEPRESSION
     Dosage: 15 MG (15 MG, 1 IN 1 D), ORAL
     Route: 048
     Dates: end: 20050301
  6. EFFEXOR XR [Suspect]
     Indication: DEPRESSION
     Dosage: 225 MG, ORAL
     Route: 048
     Dates: end: 20050301
  7. ADVAIR DISKUS 100/50 [Suspect]
     Indication: DRUG USE FOR UNKNOWN INDICATION
  8. ULTRAM [Suspect]
     Indication: DRUG USE FOR UNKNOWN INDICATION
  9. ACETAMINOPHEN [Suspect]
     Indication: DRUG USE FOR UNKNOWN INDICATION
  10. DOCUSATE SODIUM (DOCUSATE SODIUM) [Suspect]
     Indication: DRUG USE FOR UNKNOWN INDICATION
  11. ASPIRIN [Suspect]
     Indication: DRUG USE FOR UNKNOWN INDICATION
  12. PEPCID [Suspect]
     Indication: DRUG USE FOR UNKNOWN INDICATION
  13. LOVENOX [Suspect]
     Indication: DRUG USE FOR UNKNOWN INDICATION
  14. ANCEF [Suspect]
     Indication: DRUG USE FOR UNKNOWN INDICATION
  15. TRAZODONE HCL [Suspect]
     Indication: DRUG USE FOR UNKNOWN INDICATION
  16. LASIX [Suspect]
     Indication: DRUG USE FOR UNKNOWN INDICATION
  17. KEFLEX [Suspect]
     Indication: DRUG USE FOR UNKNOWN INDICATION
  18. SLO-MAG (MAGNESIUM CHLORIDE ANHYDROUS) [Suspect]
     Indication: DRUG USE FOR UNKNOWN INDICATION
  19. PROBANTHINE (PROPANTHELINE BROMIDE) [Suspect]
     Indication: DRUG USE FOR UNKNOWN INDICATION
  20. COREG [Suspect]
     Indication: DRUG USE FOR UNKNOWN INDICATION
  21. COZAAR [Suspect]
     Indication: DRUG USE FOR UNKNOWN INDICATION
  22. DARVOCET-N 100 [Suspect]
     Indication: DRUG USE FOR UNKNOWN INDICATION
  23. DUONEB [Suspect]
     Indication: DRUG USE FOR UNKNOWN INDICATION
  24. BUCINDOLOL HYDROCHLORIDE (BUCINDOLOL HYDROCHLORIDE) [Suspect]
     Indication: DRUG USE FOR UNKNOWN INDICATION

REACTIONS (3)
  - HIP FRACTURE [None]
  - HYPONATRAEMIA [None]
  - POSTOPERATIVE INFECTION [None]
